FAERS Safety Report 5788447-2 (Version None)
Quarter: 2008Q2

REPORT INFORMATION
  Report Type: 
  Country: None (occurrence: None)
  Receive Date: 20080623
  Receipt Date: 20080612
  Transmission Date: 20081010
  Serious: Yes (Hospitalization)
  Sender: FDA-Public Use
  Company Number: FABR-12041

PATIENT
  Age: 39 Year
  Sex: Male
  Weight: 80 kg

DRUGS (2)
  1. FABRAZYME [Suspect]
     Indication: FABRY'S DISEASE
     Dosage: 80 MG, Q2W, INTRAVENOUS; 70 MG, Q2W, INTRAVENOUS; 1 MG/KG, Q2W, INTRAVENOUS
     Route: 042
     Dates: start: 20040130, end: 20050622
  2. FABRAZYME [Suspect]
     Indication: FABRY'S DISEASE
     Dosage: 80 MG, Q2W, INTRAVENOUS; 70 MG, Q2W, INTRAVENOUS; 1 MG/KG, Q2W, INTRAVENOUS
     Route: 042
     Dates: start: 20050705

REACTIONS (4)
  - CLOSTRIDIUM DIFFICILE COLITIS [None]
  - HYPOVOLAEMIA [None]
  - POOR VENOUS ACCESS [None]
  - RENAL FAILURE ACUTE [None]
